FAERS Safety Report 12449562 (Version 1)
Quarter: 2016Q2

REPORT INFORMATION
  Report Type: Spontaneous
  Country: US (occurrence: US)
  Receive Date: 20160609
  Receipt Date: 20160609
  Transmission Date: 20160815
  Serious: No
  Sender: FDA-Public Use
  Company Number: US-TEVA-663657ACC

PATIENT
  Age: 16 Year
  Sex: Female
  Weight: 71.28 kg

DRUGS (1)
  1. PLAN B ONE-STEP [Suspect]
     Active Substance: LEVONORGESTREL
     Indication: POST COITAL CONTRACEPTION
     Dates: start: 20160522, end: 20160522

REACTIONS (4)
  - Headache [Not Recovered/Not Resolved]
  - Prescription drug used without a prescription [Unknown]
  - Intentional product misuse [Unknown]
  - Dysmenorrhoea [Not Recovered/Not Resolved]

NARRATIVE: CASE EVENT DATE: 20160523
